FAERS Safety Report 7946159-0 (Version None)
Quarter: 2011Q4

REPORT INFORMATION
  Report Type: 
  Country: None (occurrence: None)
  Receive Date: 20111129
  Receipt Date: 20111121
  Transmission Date: 20120403
  Serious: Yes (Other)
  Sender: FDA-Public Use
  Company Number: ES-GLAXOSMITHKLINE-B0762252A

PATIENT
  Age: 38 Year
  Sex: Female

DRUGS (1)
  1. FLUTICASONE PROPIONATE/SALMETEROL [Suspect]
     Indication: ASTHMA
     Dosage: 4PUFF PER DAY
     Route: 055
     Dates: end: 20111104

REACTIONS (3)
  - ASTHMATIC CRISIS [None]
  - PRODUCT TASTE ABNORMAL [None]
  - PRODUCT QUALITY ISSUE [None]
